FAERS Safety Report 15308289 (Version 1)
Quarter: 2018Q3

REPORT INFORMATION
  Report Type: Report from Study
  Country: US (occurrence: US)
  Receive Date: 20180822
  Receipt Date: 20180822
  Transmission Date: 20181010
  Serious: Yes (Other)
  Sender: FDA-Public Use
  Company Number: US-UCBSA-2018035881

PATIENT
  Sex: Female
  Weight: 73.4 kg

DRUGS (11)
  1. YOHIMBE [Concomitant]
     Active Substance: YOHIMBINE
     Indication: SUPPLEMENTATION THERAPY
  2. VITAMIN D [Concomitant]
     Active Substance: CHOLECALCIFEROL
     Indication: PRODUCT USED FOR UNKNOWN INDICATION
  3. VIMPAT [Suspect]
     Active Substance: LACOSAMIDE
     Indication: SEIZURE
     Dosage: 150 MG (? MORNING AND 1 TABLET NIGHT), 2X/DAY (BID)
     Route: 048
  4. GOTU KOLA [Concomitant]
     Active Substance: GOTU KOLA
     Indication: SKIN DISORDER
  5. LEVETIRACETAM. [Suspect]
     Active Substance: LEVETIRACETAM
     Indication: SEIZURE
     Dosage: 2000 MG, ONCE DAILY (QD)
     Route: 048
  6. CALCIUM [Concomitant]
     Active Substance: CALCIUM
     Indication: PRODUCT USED FOR UNKNOWN INDICATION
  7. L?CARNITINE [Concomitant]
     Active Substance: LEVOCARNITINE
     Indication: SUPPLEMENTATION THERAPY
  8. KEPPRA [Suspect]
     Active Substance: LEVETIRACETAM
     Indication: SEIZURE
     Dosage: UNK
     Route: 042
  9. VITAMIN B12 [Concomitant]
     Active Substance: CYANOCOBALAMIN
     Indication: PRODUCT USED FOR UNKNOWN INDICATION
  10. TURMERIC [Concomitant]
     Active Substance: HERBALS\TURMERIC
     Indication: PRODUCT USED FOR UNKNOWN INDICATION
  11. MAGNESIUM [Concomitant]
     Active Substance: MAGNESIUM
     Indication: PRODUCT USED FOR UNKNOWN INDICATION

REACTIONS (5)
  - Respiratory tract infection [Unknown]
  - Seizure [Recovered/Resolved]
  - Disturbance in attention [Unknown]
  - Off label use [Unknown]
  - Headache [Unknown]
